FAERS Safety Report 10777645 (Version 2)
Quarter: 2015Q3

REPORT INFORMATION
  Report Type: Spontaneous
  Country: US (occurrence: US)
  Receive Date: 20150209
  Receipt Date: 20150908
  Transmission Date: 20151125
  Serious: No
  Sender: FDA-Public Use
  Company Number: US-GLAXOSMITHKLINE-US2014GSK049636

PATIENT
  Age: 60 Year
  Sex: Female

DRUGS (1)
  1. ADVAIR DISKUS [Suspect]
     Active Substance: FLUTICASONE PROPIONATE\SALMETEROL XINAFOATE
     Indication: PRODUCT USED FOR UNKNOWN INDICATION
     Dosage: UNK

REACTIONS (11)
  - Asthma [Unknown]
  - Arthralgia [Unknown]
  - Ligament sprain [Unknown]
  - Back disorder [Unknown]
  - Contusion [Unknown]
  - Pain in extremity [Unknown]
  - Fall [Unknown]
  - Musculoskeletal pain [Unknown]
  - Osteoarthritis [Unknown]
  - Limb injury [Unknown]
  - Back pain [Unknown]

NARRATIVE: CASE EVENT DATE: 20140923
